FAERS Safety Report 16766040 (Version 1)
Quarter: 2019Q3

REPORT INFORMATION
  Report Type: Spontaneous
  Country: DE (occurrence: DE)
  Receive Date: 20190903
  Receipt Date: 20190903
  Transmission Date: 20191005
  Serious: Yes (Congenital Anomaly, Other)
  Sender: FDA-Public Use
  Company Number: DE-DRREDDYS-GER/GER/12/0025461

PATIENT
  Sex: Male
  Weight: 3.87 kg

DRUGS (6)
  1. CETIRIZINE [Suspect]
     Active Substance: CETIRIZINE HYDROCHLORIDE
     Indication: PRODUCT USED FOR UNKNOWN INDICATION
     Dosage: DAILY DOSE:10 MG
     Route: 064
     Dates: start: 20110308, end: 20110428
  2. FEMIBION [Concomitant]
     Indication: PRODUCT USED FOR UNKNOWN INDICATION
     Route: 064
  3. INSULIN [Concomitant]
     Active Substance: INSULIN NOS
     Indication: PRODUCT USED FOR UNKNOWN INDICATION
     Route: 064
     Dates: start: 20111016
  4. OTRIVEN [Suspect]
     Active Substance: XYLOMETAZOLINE HYDROCHLORIDE
     Indication: PRODUCT USED FOR UNKNOWN INDICATION
     Route: 064
     Dates: start: 20110308, end: 20111214
  5. AMOXCLAV SANDOZ [Concomitant]
     Active Substance: AMOXICILLIN\CLAVULANATE POTASSIUM
     Indication: PRODUCT USED FOR UNKNOWN INDICATION
     Dosage: 375 [MG/D (3X125) ] / 1500 [MG/D (3X500) ]
     Route: 064
     Dates: start: 20110420, end: 20110427
  6. TD-IMPFSTOFF M?RIEUX [Concomitant]
     Indication: PRODUCT USED FOR UNKNOWN INDICATION
     Route: 064
     Dates: start: 20110421, end: 20110421

REACTIONS (2)
  - Maternal exposure during pregnancy [Recovered/Resolved]
  - Anal atresia [Recovered/Resolved with Sequelae]

NARRATIVE: CASE EVENT DATE: 20110308
